FAERS Safety Report 8037856-X (Version None)
Quarter: 2012Q1

REPORT INFORMATION
  Report Type: 
  Country: None (occurrence: None)
  Receive Date: 20120111
  Receipt Date: 20120105
  Transmission Date: 20120608
  Serious: Yes (Hospitalization)
  Sender: FDA-Public Use
  Company Number: PHHY2012IT000807

PATIENT
  Sex: Male

DRUGS (2)
  1. TERAZOSIN HCL [Suspect]
  2. FUROSEMIDE [Suspect]

REACTIONS (2)
  - ORTHOSTATIC HYPOTENSION [None]
  - PRESYNCOPE [None]
